FAERS Safety Report 14720820 (Version 6)
Quarter: 2020Q3

REPORT INFORMATION
  Report Type: Report from Study
  Country: BE (occurrence: BE)
  Receive Date: 20180405
  Receipt Date: 20200713
  Transmission Date: 20201102
  Serious: Yes (Other)
  Sender: FDA-Public Use
  Company Number: BE-MYLANLABS-2018M1021278

PATIENT
  Age: 36 Year
  Sex: Female

DRUGS (4)
  1. GILENYA [Suspect]
     Active Substance: FINGOLIMOD HYDROCHLORIDE
     Indication: MULTIPLE SCLEROSIS
     Dosage: 0.5 MG, QD
     Route: 048
     Dates: start: 20150528
  2. GILENYA [Suspect]
     Active Substance: FINGOLIMOD HYDROCHLORIDE
     Dosage: 0.5 MG, QD
     Route: 048
     Dates: start: 20130205, end: 20150220
  3. CARBAMAZEPINE. [Suspect]
     Active Substance: CARBAMAZEPINE
     Indication: NEURALGIA
     Dosage: 200 MG, QD
     Dates: start: 20160325, end: 20160325
  4. GABAPENTIN. [Concomitant]
     Active Substance: GABAPENTIN
     Indication: PAIN
     Dosage: UNK
     Dates: start: 20160325

REACTIONS (14)
  - Malnutrition [Unknown]
  - Dyspepsia [Unknown]
  - Anaphylactic reaction [Recovered/Resolved]
  - Urticaria [Unknown]
  - Muscle spasms [Not Recovered/Not Resolved]
  - Weight decreased [Recovered/Resolved]
  - Menopausal symptoms [Not Recovered/Not Resolved]
  - Iron deficiency [Recovered/Resolved]
  - Headache [Not Recovered/Not Resolved]
  - Multiple sclerosis relapse [Unknown]
  - Stress [Not Recovered/Not Resolved]
  - Uhthoff^s phenomenon [Unknown]
  - Flushing [Recovered/Resolved]
  - Pharyngeal oedema [Recovered/Resolved]

NARRATIVE: CASE EVENT DATE: 20150317
